FAERS Safety Report 13107272 (Version 1)
Quarter: 2017Q1

REPORT INFORMATION
  Report Type: Spontaneous
  Country: US (occurrence: US)
  Receive Date: 20170112
  Receipt Date: 20170112
  Transmission Date: 20170428
  Serious: Yes (Other)
  Sender: FDA-Public Use
  Company Number: US-BRISTOL-MYERS SQUIBB COMPANY-BMS-2016-112886

PATIENT
  Age: 66 Year
  Sex: Male

DRUGS (4)
  1. WARFARIN SODIUM. [Suspect]
     Active Substance: WARFARIN SODIUM
     Indication: MITRAL VALVE REPLACEMENT
     Dosage: 30 MG, UNK
     Route: 065
     Dates: start: 2011
  2. LEDIPASVIR W/SOFOSBUVIR [Interacting]
     Active Substance: LEDIPASVIR\SOFOSBUVIR
     Indication: CHRONIC HEPATITIS C
     Dosage: UNK
     Route: 065
     Dates: start: 2015
  3. WARFARIN SODIUM. [Interacting]
     Active Substance: WARFARIN SODIUM
     Indication: ATRIAL FIBRILLATION
     Dosage: 75 MG, UNK
     Route: 065
  4. RIBAVIRIN. [Suspect]
     Active Substance: RIBAVIRIN
     Indication: CHRONIC HEPATITIS C
     Dosage: 600 MG, BID
     Route: 065

REACTIONS (4)
  - Accidental overdose [Unknown]
  - Drug interaction [Unknown]
  - Anticoagulation drug level below therapeutic [Unknown]
  - International normalised ratio increased [Unknown]
